FAERS Safety Report 9681168 (Version 1)
Quarter: 2013Q4

REPORT INFORMATION
  Report Type: Spontaneous
  Country: US (occurrence: US)
  Receive Date: 20131111
  Receipt Date: 20131111
  Transmission Date: 20140711
  Serious: No
  Sender: FDA-Public Use
  Company Number: US-ENDO PHARMACEUTICALS INC.-PROF20110017

PATIENT
  Age: 74 Year
  Sex: Female
  Weight: 58.57 kg

DRUGS (3)
  1. PROPAFENONE HYDROCHLORIDE TABLETS 150MG [Suspect]
     Indication: ATRIAL FIBRILLATION
     Route: 048
     Dates: start: 20111003, end: 20111007
  2. ASA [Concomitant]
     Indication: PROPHYLAXIS
     Route: 048
     Dates: start: 2001
  3. CRESTOR [Concomitant]
     Indication: HYPERCHOLESTEROLAEMIA
     Route: 048
     Dates: start: 20110808

REACTIONS (4)
  - Lethargy [Recovered/Resolved]
  - Somnolence [Recovered/Resolved]
  - Abdominal pain [Recovered/Resolved]
  - Diarrhoea [Recovered/Resolved]
